FAERS Safety Report 14677000 (Version 5)
Quarter: 2018Q3

REPORT INFORMATION
  Report Type: Spontaneous
  Country: PT (occurrence: PT)
  Receive Date: 20180324
  Receipt Date: 20180805
  Transmission Date: 20181010
  Serious: Yes (Other)
  Sender: FDA-Public Use
  Company Number: PT-CONCORDIA PHARMACEUTICALS INC.-GSH201803-001019

PATIENT
  Age: 54 Year
  Sex: Male

DRUGS (3)
  1. HYDROCORTISONE. [Suspect]
     Active Substance: HYDROCORTISONE
     Indication: RHEUMATOID ARTHRITIS
     Route: 065
  2. HYDROXYCHLOROQUINE [Suspect]
     Active Substance: HYDROXYCHLOROQUINE
     Indication: RHEUMATOID ARTHRITIS
     Route: 065
  3. METHOTREXATE. [Suspect]
     Active Substance: METHOTREXATE
     Indication: RHEUMATOID ARTHRITIS
     Route: 065

REACTIONS (7)
  - Ischaemic stroke [Recovering/Resolving]
  - Dysarthria [Recovering/Resolving]
  - Infarction [Recovering/Resolving]
  - Eye movement disorder [Recovering/Resolving]
  - Vasculitis [Recovering/Resolving]
  - Hemiparesis [Recovering/Resolving]
  - CSF oligoclonal band present [Recovering/Resolving]
